FAERS Safety Report 4675691-0 (Version None)
Quarter: 2005Q2

REPORT INFORMATION
  Report Type: 
  Country: None (occurrence: None)
  Receive Date: 20050527
  Receipt Date: 20050128
  Transmission Date: 20051028
  Serious: No
  Sender: FDA-Public Use
  Company Number: US-BRISTOL-MYERS SQUIBB COMPANY-12843256

PATIENT
  Age: 60 Year
  Sex: Female

DRUGS (2)
  1. ERBITUX [Suspect]
     Indication: COLON CANCER METASTATIC
     Dosage: INTERRUPTED ON 13-JAN-2005; THEN DISCONTINUED ON 10-FEB-2005.
     Route: 042
     Dates: start: 20050107, end: 20050107
  2. IRINOTECAN [Concomitant]
     Dates: start: 20041230, end: 20041230

REACTIONS (4)
  - ERYTHEMA [None]
  - EXCORIATION [None]
  - NAIL DISORDER [None]
  - SKIN DISORDER [None]
